FAERS Safety Report 8117318-1 (Version None)
Quarter: 2012Q1

REPORT INFORMATION
  Report Type: 
  Country: None (occurrence: None)
  Receive Date: 20120206
  Receipt Date: 20120130
  Transmission Date: 20120608
  Serious: Yes (Hospitalization)
  Sender: FDA-Public Use
  Company Number: CA-ROCHE-1015465

PATIENT
  Sex: Male
  Weight: 89.892 kg

DRUGS (13)
  1. PLAQUENIL [Concomitant]
  2. DOCUSATE [Concomitant]
  3. TRAVOPROST AND TIMOLOL [Concomitant]
  4. METHOTREXATE [Concomitant]
  5. ASPIRIN [Concomitant]
  6. FOLIC ACID [Concomitant]
  7. PANTOPRAZOLE SODIUM [Concomitant]
  8. ACTONEL [Concomitant]
  9. ACTEMRA [Suspect]
     Indication: RHEUMATOID ARTHRITIS
     Route: 042
     Dates: start: 20110630
  10. SIMVASTATIN [Concomitant]
  11. CALCIUM [Concomitant]
  12. RAMIPRIL [Concomitant]
     Indication: BLOOD PRESSURE
  13. SULFASALAZINE [Concomitant]

REACTIONS (1)
  - PERIPHERAL REVASCULARISATION [None]
